FAERS Safety Report 9072273 (Version 1)
Quarter: 2013Q1

REPORT INFORMATION
  Report Type: Spontaneous
  Country: US (occurrence: US)
  Receive Date: 20130206
  Receipt Date: 20130206
  Transmission Date: 20140127
  Serious: No
  Sender: FDA-Public Use
  Company Number: US-ALLERGAN-1217004US

PATIENT
  Age: 73 Year
  Sex: Female

DRUGS (5)
  1. RESTASIS? [Suspect]
     Indication: DRY EYE
     Dosage: 2 GTT, BID
     Route: 047
     Dates: start: 201210
  2. VANESSA CREAM NOS [Concomitant]
     Indication: ROSACEA
     Dosage: UNK, BID
     Route: 061
  3. UNSPECIFIED INGREDIENT [Suspect]
     Indication: ROSACEA
     Dosage: UNK
     Route: 061
  4. LIPITOR [Concomitant]
     Indication: BLOOD CHOLESTEROL INCREASED
     Dosage: 20 MG, QD
     Route: 048
  5. DIOVAN HCT [Concomitant]
     Indication: HYPERTENSION
     Dosage: 25 MG, UNK
     Route: 048

REACTIONS (1)
  - Eye irritation [Recovering/Resolving]
